FAERS Safety Report 5676846-9 (Version None)
Quarter: 2008Q1

REPORT INFORMATION
  Report Type: 
  Country: None (occurrence: None)
  Receive Date: 20080324
  Receipt Date: 20080317
  Transmission Date: 20080703
  Serious: Yes (Hospitalization)
  Sender: FDA-Public Use
  Company Number: US-AVENTIS-200810299US

PATIENT
  Sex: Female
  Weight: 52.16 kg

DRUGS (1)
  1. APIDRA [Suspect]
     Dosage: DOSE: BASAL RATE 21.75 UNITS AND MEAL TIME BOLUS OF 5-12 UNITS
     Dates: start: 20070901, end: 20080101

REACTIONS (21)
  - ANION GAP INCREASED [None]
  - BACTERIURIA [None]
  - BLOOD BICARBONATE DECREASED [None]
  - BLOOD CREATINE PHOSPHOKINASE MB INCREASED [None]
  - BLOOD GASES ABNORMAL [None]
  - BLOOD GLUCOSE INCREASED [None]
  - BLOOD KETONE BODY INCREASED [None]
  - BLOOD PH DECREASED [None]
  - CARBON DIOXIDE DECREASED [None]
  - DIABETIC KETOACIDOSIS [None]
  - DRUG INEFFECTIVE [None]
  - KIDNEY INFECTION [None]
  - NAUSEA [None]
  - PCO2 DECREASED [None]
  - PHARMACEUTICAL PRODUCT COMPLAINT [None]
  - POLLAKIURIA [None]
  - PROTEIN URINE PRESENT [None]
  - RED BLOOD CELLS URINE POSITIVE [None]
  - VOMITING [None]
  - WHITE BLOOD CELL COUNT INCREASED [None]
  - WHITE BLOOD CELLS URINE POSITIVE [None]
